FAERS Safety Report 8175544-X (Version None)
Quarter: 2012Q1

REPORT INFORMATION
  Report Type: 
  Country: None (occurrence: None)
  Receive Date: 20120229
  Receipt Date: 20120223
  Transmission Date: 20120608
  Serious: Yes (Hospitalization)
  Sender: FDA-Public Use
  Company Number: US-VERTEX PHARMACEUTICALS INC.-AE-2012-002687

PATIENT
  Sex: Male

DRUGS (3)
  1. INCIVEK [Suspect]
     Indication: HEPATITIS C
     Route: 048
     Dates: start: 20110909, end: 20111201
  2. PEGASYS [Concomitant]
     Indication: HEPATITIS C
     Route: 058
     Dates: start: 20110909, end: 20120217
  3. RIBAVIRIN [Concomitant]
     Indication: HEPATITIS C
     Route: 048
     Dates: start: 20110909

REACTIONS (6)
  - PNEUMONIA [None]
  - RASH PRURITIC [None]
  - OEDEMA [None]
  - WEIGHT INCREASED [None]
  - ARTHRALGIA [None]
  - WHITE BLOOD CELL COUNT DECREASED [None]
